FAERS Safety Report 5885219-5 (Version None)
Quarter: 2008Q3

REPORT INFORMATION
  Report Type: 
  Country: None (occurrence: None)
  Receive Date: 20080916
  Receipt Date: 20080911
  Transmission Date: 20090109
  Serious: Yes (Other)
  Sender: FDA-Public Use
  Company Number: US-ASTRAZENECA-2008UW08932

PATIENT
  Age: 37 Year
  Sex: Female
  Weight: 48.5 kg

DRUGS (6)
  1. SEROQUEL [Suspect]
     Indication: PSYCHOTIC DISORDER
     Dosage: 25-200 MG
     Route: 048
     Dates: start: 20041220, end: 20080101
  2. SEROQUEL [Suspect]
     Indication: DEPRESSION
     Dosage: 25-200 MG
     Route: 048
     Dates: start: 20041220, end: 20080101
  3. ZYPREXA [Concomitant]
  4. LITHIUM CARBONATE [Concomitant]
  5. LITHIUM CARBONATE [Concomitant]
  6. CELEXA [Concomitant]
     Dates: start: 20041220

REACTIONS (3)
  - BIPOLAR DISORDER [None]
  - BLOOD CHOLESTEROL INCREASED [None]
  - NERVOUS SYSTEM DISORDER [None]
